FAERS Safety Report 23807944 (Version 6)
Quarter: 2024Q4

REPORT INFORMATION
  Report Type: Spontaneous
  Country: AU (occurrence: AU)
  Receive Date: 20240502
  Receipt Date: 20241107
  Transmission Date: 20250115
  Serious: Yes (Other)
  Sender: PFIZER
  Company Number: AU-PFIZER INC-202400095756

PATIENT
  Age: 51 Year
  Sex: Female

DRUGS (2)
  1. SOMATROPIN [Suspect]
     Active Substance: SOMATROPIN
     Dosage: UNK, 0.2 DOSE
  2. SOMATROPIN [Suspect]
     Active Substance: SOMATROPIN
     Dosage: UNK, 0.1 DOSE

REACTIONS (6)
  - Product supply issue [Unknown]
  - Incorrect dose administered by device [Unknown]
  - Pain [Unknown]
  - Arthralgia [Unknown]
  - Back pain [Unknown]
  - Chest pain [Unknown]
